FAERS Safety Report 21535913 (Version 2)
Quarter: 2022Q4

REPORT INFORMATION
  Report Type: Report from Study
  Country: US (occurrence: US)
  Receive Date: 20221101
  Receipt Date: 20221223
  Transmission Date: 20230113
  Serious: Yes (Other)
  Sender: FDA-Public Use
  Company Number: US-ABBVIE-4149090

PATIENT
  Age: 74 Year
  Sex: Female
  Weight: 60.327 kg

DRUGS (26)
  1. HUMIRA [Suspect]
     Active Substance: ADALIMUMAB
     Indication: Rheumatoid arthritis
     Dosage: CITRATE FREE
     Route: 058
     Dates: start: 20220517, end: 20220906
  2. PFIZER-BIONTECH COVID-19 VACCINE [Concomitant]
     Active Substance: TOZINAMERAN
     Indication: COVID-19 immunisation
     Dosage: COVID VACCINE?ONE IN ONCE
     Route: 030
  3. ESTRADIOL TRANSDERMAL SYSTEM [Concomitant]
     Active Substance: ESTRADIOL
     Indication: Product used for unknown indication
     Dosage: TWICE WEEKELY
     Dates: start: 199609
  4. RESTASIS [Concomitant]
     Active Substance: CYCLOSPORINE
     Indication: Product used for unknown indication
     Dosage: 2X DAY?0.05 % EYE DROPS IN A DROPPERETTE
     Dates: start: 20210704
  5. Calcium 600+ [Concomitant]
     Indication: Product used for unknown indication
  6. PREDNISONE [Concomitant]
     Active Substance: PREDNISONE
     Indication: Product used for unknown indication
     Dosage: 10 MILLIGRAM
     Dates: start: 202205
  7. PREDNISONE [Concomitant]
     Active Substance: PREDNISONE
     Indication: Product used for unknown indication
     Dates: start: 20211230
  8. PREDNISONE [Concomitant]
     Active Substance: PREDNISONE
     Indication: Product used for unknown indication
     Dosage: 5 MILLIGRAM
     Dates: end: 20220701
  9. PREDNISONE [Concomitant]
     Active Substance: PREDNISONE
     Indication: Product used for unknown indication
     Dosage: 10 MILLIGRAM
     Dates: end: 20220708
  10. PREDNISONE [Concomitant]
     Active Substance: PREDNISONE
     Indication: Product used for unknown indication
     Dosage: 5 MILLIGRAM
     Dates: start: 20220417
  11. LEXAPRO [Concomitant]
     Active Substance: ESCITALOPRAM OXALATE
     Indication: Product used for unknown indication
     Dosage: 10MG TABLET ?TAKE 1 TABLET DAILY BY MOUTH
     Dates: start: 20220519
  12. LEXAPRO [Concomitant]
     Active Substance: ESCITALOPRAM OXALATE
     Indication: Product used for unknown indication
     Dosage: TAKE 1 TABLET DAILY BY MOUTH
     Dates: start: 20220603
  13. COSOPT PF [Concomitant]
     Active Substance: DORZOLAMIDE HYDROCHLORIDE\TIMOLOL MALEATE
     Indication: Product used for unknown indication
     Dosage: 2X DAY? 1 DROP LEFT EYE
     Dates: start: 20210407
  14. Pantoprazole 40 mg tab (Proton) [Concomitant]
     Indication: Product used for unknown indication
     Dosage: 40MG TAB
     Dates: start: 20211027
  15. Pantoprazole 40 mg tab (Proton) [Concomitant]
     Indication: Product used for unknown indication
     Dates: start: 20221027
  16. FOLIC ACID [Concomitant]
     Active Substance: FOLIC ACID
     Indication: Product used for unknown indication
     Dates: start: 20220105
  17. Covid-19 vaccine [Concomitant]
     Indication: COVID-19 immunisation
     Dosage: BOOSTER DOSE?ONE IN ONCE
     Route: 030
     Dates: start: 20220408, end: 20220408
  18. METHOTREXATE [Concomitant]
     Active Substance: METHOTREXATE
     Indication: Product used for unknown indication
     Dosage: 2.5MG X6 (15MG) DAILY
     Dates: start: 20220105
  19. METHOTREXATE [Concomitant]
     Active Substance: METHOTREXATE
     Indication: Product used for unknown indication
     Dosage: X4 (10MG) TWICE DAILY
     Dates: start: 20220302
  20. METHOTREXATE [Concomitant]
     Active Substance: METHOTREXATE
     Indication: Product used for unknown indication
     Dosage: X5 (12.5MG) TWICE DAILY
     Dates: start: 20220330
  21. METHOTREXATE [Concomitant]
     Active Substance: METHOTREXATE
     Indication: Product used for unknown indication
     Dosage: LAST ADMIN DATE-2022
     Dates: start: 20220413
  22. METHOTREXATE [Concomitant]
     Active Substance: METHOTREXATE
     Indication: Product used for unknown indication
     Dosage: LAST ADMIN DATE-2022
     Dates: start: 20220413
  23. METHOTREXATE [Concomitant]
     Active Substance: METHOTREXATE
     Indication: Product used for unknown indication
     Dosage: LAST ADMIN DATE-2022
     Dates: start: 20220824
  24. Torsemide 10 mg (Fluid) [Concomitant]
     Indication: Product used for unknown indication
     Dosage: 20MG (FLUID)?1 TABLET DAILY
  25. Torsemide 10 mg (Fluid) [Concomitant]
     Indication: Product used for unknown indication
     Dosage: 10MG FLUID?1/2 TABLET DAILY
     Dates: start: 20220923
  26. Vitamin D3 5000 [Concomitant]
     Indication: Product used for unknown indication

REACTIONS (2)
  - Pneumocystis jirovecii infection [Recovering/Resolving]
  - Pneumonia [Unknown]

NARRATIVE: CASE EVENT DATE: 20220701
